FAERS Safety Report 7559484-2 (Version None)
Quarter: 2011Q2

REPORT INFORMATION
  Report Type: 
  Country: None (occurrence: None)
  Receive Date: 20110621
  Receipt Date: 20110615
  Transmission Date: 20111010
  Serious: Yes (Hospitalization)
  Sender: FDA-Public Use
  Company Number: US-B.I. PHARMACEUTICALS,INC./RIDGEFIELD-2011-BP-15428BP

PATIENT
  Age: 74 Year
  Sex: Female

DRUGS (17)
  1. LOVAZA [Concomitant]
     Indication: BLOOD CHOLESTEROL INCREASED
     Dosage: 1 G
     Route: 048
  2. PRADAXA [Suspect]
     Indication: ATRIAL FIBRILLATION
     Dosage: 150 MG
     Route: 048
  3. VITAMIN D [Concomitant]
     Indication: OSTEOPOROSIS
     Route: 048
  4. COREG [Concomitant]
     Indication: HYPERTENSION
     Dosage: 25 MG
     Route: 048
  5. TORSEMIDE [Concomitant]
     Indication: CARDIAC FAILURE CONGESTIVE
  6. FLUCONAZOLE [Concomitant]
     Route: 048
  7. INSULIN [Concomitant]
     Indication: DIABETES MELLITUS
     Route: 058
  8. TORSEMIDE [Concomitant]
     Indication: PULMONARY OEDEMA
     Dosage: 80 MG
     Route: 048
  9. M.V.I. [Concomitant]
     Indication: ROUTINE HEALTH MAINTENANCE
     Route: 048
  10. NORVASC [Concomitant]
     Indication: HYPERTENSION
     Dosage: 10 MG
     Route: 048
  11. SIMVASTATIN [Concomitant]
     Indication: BLOOD CHOLESTEROL INCREASED
     Route: 048
  12. ASPIRIN [Concomitant]
     Indication: ROUTINE HEALTH MAINTENANCE
     Dosage: 81 MG
     Route: 048
  13. CALTRATE D [Concomitant]
     Indication: OSTEOPOROSIS
     Dosage: 600 MG
     Route: 048
  14. FIBER THERAPY [Concomitant]
     Indication: ROUTINE HEALTH MAINTENANCE
     Route: 048
  15. MIRAPEX [Concomitant]
     Indication: MUSCLE SPASMS
     Dosage: 0.5 MG
     Route: 048
  16. COLACE [Concomitant]
     Indication: ROUTINE HEALTH MAINTENANCE
     Route: 048
  17. NEPHROVITE [Concomitant]
     Indication: ROUTINE HEALTH MAINTENANCE
     Route: 048

REACTIONS (3)
  - CHEST PAIN [None]
  - RENAL FAILURE [None]
  - RENAL IMPAIRMENT [None]
